FAERS Safety Report 12922051 (Version 4)
Quarter: 2017Q1

REPORT INFORMATION
  Report Type: Report from Study
  Country: US (occurrence: US)
  Receive Date: 20161108
  Receipt Date: 20170125
  Transmission Date: 20170428
  Serious: Yes (Hospitalization)
  Sender: FDA-Public Use
  Company Number: US-GILEAD-2016-0235322

PATIENT
  Age: 57 Year
  Sex: Female
  Weight: 46.98 kg

DRUGS (25)
  1. UPTRAVI [Suspect]
     Active Substance: SELEXIPAG
     Indication: PRODUCT USED FOR UNKNOWN INDICATION
     Dosage: 200 UG, BID
     Route: 048
     Dates: start: 20160921
  2. UPTRAVI [Suspect]
     Active Substance: SELEXIPAG
     Dosage: 1000 UG, BID
     Route: 048
  3. PROTONIX [Concomitant]
     Active Substance: PANTOPRAZOLE SODIUM
  4. UPTRAVI [Suspect]
     Active Substance: SELEXIPAG
     Dosage: 600 UG, BID
     Route: 048
  5. AMBRISENTAN [Suspect]
     Active Substance: AMBRISENTAN
     Indication: PULMONARY HYPERTENSION
  6. UPTRAVI [Suspect]
     Active Substance: SELEXIPAG
     Dosage: 1000 UG, BID
     Route: 048
  7. MELATONIN [Concomitant]
     Active Substance: MELATONIN
  8. CHONDROITIN W/GLUCOSAMINE SULFATE [Concomitant]
  9. UPTRAVI [Suspect]
     Active Substance: SELEXIPAG
     Dosage: 1200 UG, BID
     Route: 048
  10. REVATIO [Concomitant]
     Active Substance: SILDENAFIL CITRATE
  11. CENTRUM SILVER                     /02363801/ [Concomitant]
     Active Substance: MINERALS\VITAMINS
  12. IMODIUM [Concomitant]
     Active Substance: LOPERAMIDE HYDROCHLORIDE
  13. FISH OIL [Concomitant]
     Active Substance: FISH OIL
  14. VITAMIN E                          /00110502/ [Concomitant]
  15. AMBRISENTAN [Suspect]
     Active Substance: AMBRISENTAN
     Indication: SJOGREN^S SYNDROME
     Dosage: 10 MG, QD
     Route: 048
     Dates: start: 20160919
  16. K-TAB [Concomitant]
     Active Substance: POTASSIUM CHLORIDE
  17. EVOXAC [Concomitant]
     Active Substance: CEVIMELINE HYDROCHLORIDE
  18. LASIX [Concomitant]
     Active Substance: FUROSEMIDE
  19. CALCIUM CARBONATE/VITAMIN D3 [Concomitant]
     Active Substance: CALCIUM CARBONATE\CHOLECALCIFEROL
  20. TYLENOL [Concomitant]
     Active Substance: ACETAMINOPHEN
  21. SILDENAFIL CITRATE. [Concomitant]
     Active Substance: SILDENAFIL CITRATE
  22. VITAMIN B COMPLEX [Concomitant]
     Active Substance: CYANOCOBALAMIN\DEXPANTHENOL\NIACINAMIDE\PYRIDOXINE HYDROCHLORIDE\RIBOFLAVIN 5^-PHOSPHATE SODIUM\THIAMINE HYDROCHLORIDE\VITAMIN B COMPLEX
  23. RESTASIS [Concomitant]
     Active Substance: CYCLOSPORINE
  24. REFRESH TEAR [Concomitant]
  25. VITAMIN C [Concomitant]
     Active Substance: ASCORBIC ACID

REACTIONS (11)
  - Oedema peripheral [Unknown]
  - Diarrhoea [Not Recovered/Not Resolved]
  - Nasopharyngitis [Not Recovered/Not Resolved]
  - Pain [Unknown]
  - Pain in extremity [Not Recovered/Not Resolved]
  - Back pain [Recovering/Resolving]
  - Flushing [Unknown]
  - Headache [Not Recovered/Not Resolved]
  - Arthralgia [Unknown]
  - Arthralgia [Recovered/Resolved]
  - Cough [Unknown]

NARRATIVE: CASE EVENT DATE: 20161102
